FAERS Safety Report 7528678-4 (Version None)
Quarter: 2011Q2

REPORT INFORMATION
  Report Type: 
  Country: None (occurrence: None)
  Receive Date: 20110607
  Receipt Date: 20110524
  Transmission Date: 20111010
  Serious: Yes (Hospitalization, Other)
  Sender: FDA-Public Use
  Company Number: CA-JNJFOC-20100901699

PATIENT
  Sex: Male
  Weight: 87 kg

DRUGS (12)
  1. ALTACE [Concomitant]
  2. CRESTOR [Concomitant]
  3. STEROIDS NOS [Concomitant]
  4. REMICADE [Suspect]
     Dosage: TO THE ^PRESENT^
     Route: 042
     Dates: start: 20080101
  5. VITAMIN D [Concomitant]
  6. METOPROLOL SUCCINATE [Concomitant]
  7. FAMOTIDINE [Concomitant]
  8. WARFARIN SODIUM [Concomitant]
     Indication: ATRIAL FIBRILLATION
     Dates: start: 20100201, end: 20100723
  9. REMICADE [Suspect]
     Indication: COLITIS ULCERATIVE
     Route: 042
  10. CIMETIDINE [Concomitant]
  11. LOVAZA [Concomitant]
  12. ASPIRIN [Concomitant]
     Route: 065

REACTIONS (2)
  - ATRIAL FIBRILLATION [None]
  - SUBDURAL HAEMATOMA [None]
